FAERS Safety Report 12125057 (Version 2)
Quarter: 2016Q1

REPORT INFORMATION
  Report Type: Spontaneous
  Country: US (occurrence: US)
  Receive Date: 20160229
  Receipt Date: 20160229
  Transmission Date: 20160526
  Serious: No
  Sender: FDA-Public Use
  Company Number: US-ABBVIE-15P-163-1447475-00

PATIENT
  Age: 58 Year
  Sex: Female

DRUGS (2)
  1. ANDROGEL [Suspect]
     Active Substance: TESTOSTERONE
     Indication: ACCIDENTAL EXPOSURE TO PRODUCT
     Dosage: 2 PUMPS EVERY 3-4 DAYS
     Route: 062
     Dates: start: 201507
  2. ANDROGEL [Suspect]
     Active Substance: TESTOSTERONE
     Indication: ACCIDENTAL EXPOSURE TO PRODUCT
     Dosage: ONE  5 GRM PACKET EVERY 3-4 DAYS
     Route: 062

REACTIONS (5)
  - Drug administration error [Unknown]
  - Accidental exposure to product [Not Recovered/Not Resolved]
  - Arthralgia [Not Recovered/Not Resolved]
  - Back pain [Not Recovered/Not Resolved]
  - Rash [Not Recovered/Not Resolved]

NARRATIVE: CASE EVENT DATE: 201507
